FAERS Safety Report 16920332 (Version 3)
Quarter: 2021Q2

REPORT INFORMATION
  Report Type: Spontaneous
  Country: IT (occurrence: IT)
  Receive Date: 20191015
  Receipt Date: 20210623
  Transmission Date: 20210716
  Serious: Yes (Other)
  Sender: FDA-Public Use
  Company Number: NVSC2019IT001417

PATIENT
  Sex: Female

DRUGS (1)
  1. SECUKINUMAB. [Suspect]
     Active Substance: SECUKINUMAB
     Indication: BEHCET^S SYNDROME
     Dosage: 150 MG, QMO
     Route: 065

REACTIONS (3)
  - Product use in unapproved indication [Unknown]
  - Behcet^s syndrome [Unknown]
  - Maternal exposure during pregnancy [Unknown]
